FAERS Safety Report 4354962-1 (Version None)
Quarter: 2004Q2

REPORT INFORMATION
  Report Type: 
  Country: None (occurrence: None)
  Receive Date: 20040504
  Receipt Date: 20040419
  Transmission Date: 20050107
  Serious: Yes (Hospitalization)
  Sender: FDA-Public Use
  Company Number: 194585

PATIENT
  Age: 59 Year
  Sex: Female
  Weight: 133.3575 kg

DRUGS (12)
  1. AVONEX [Suspect]
     Indication: MULTIPLE SCLEROSIS
     Dosage: 30 MCG QW IM
     Route: 042
     Dates: start: 20020401, end: 20031201
  2. AVONEX [Suspect]
     Indication: MULTIPLE SCLEROSIS
     Dosage: 30 MCG QW IM
     Route: 042
     Dates: start: 20031201
  3. ALLOPURINOL TAB [Concomitant]
  4. AVAPRO [Concomitant]
  5. ZEBETA [Concomitant]
  6. LORTAB [Concomitant]
  7. ARTHROTEC [Concomitant]
  8. LASIX [Concomitant]
  9. ZAROXOLYN [Concomitant]
  10. CARBIDOPA [Concomitant]
  11. FROVA [Concomitant]
  12. FIORICET [Concomitant]

REACTIONS (2)
  - FALL [None]
  - MENISCUS LESION [None]
